FAERS Safety Report 6564446-8 (Version None)
Quarter: 2010Q1

REPORT INFORMATION
  Report Type: 
  Country: None (occurrence: None)
  Receive Date: 20100201
  Receipt Date: 20100126
  Transmission Date: 20100710
  Serious: Yes (Hospitalization)
  Sender: FDA-Public Use
  Company Number: US-SANOFI-AVENTIS-2009SA009835

PATIENT
  Age: 85 Year
  Sex: Male
  Weight: 62.7 kg

DRUGS (20)
  1. PLAVIX [Suspect]
     Indication: STENT PLACEMENT
     Route: 048
  2. PLAVIX [Suspect]
     Indication: CORONARY ARTERY DISEASE
     Route: 048
  3. PLAVIX [Suspect]
     Route: 048
     Dates: start: 20060101
  4. PLAVIX [Suspect]
     Route: 048
     Dates: start: 20060101
  5. ZANTAC [Concomitant]
     Dates: start: 20091207
  6. COQ10 [Concomitant]
  7. B-50 [Concomitant]
  8. CRESTOR [Concomitant]
  9. LEVOTHYROXINE SODIUM [Concomitant]
  10. LISINOPRIL [Concomitant]
  11. NIFEDIPINE [Concomitant]
  12. NIACIN [Concomitant]
  13. ASPIRIN [Concomitant]
  14. TERAZOSIN HCL [Concomitant]
  15. VITAMINS [Concomitant]
  16. CALCIUM/VITAMIN D [Concomitant]
  17. PRILOSEC [Concomitant]
     Dates: end: 20091207
  18. TRAMADOL [Concomitant]
  19. OMEGA-3 POLYUNSATURATED FATTY ACID [Concomitant]
  20. IODINE [Concomitant]

REACTIONS (8)
  - BODY TEMPERATURE INCREASED [None]
  - BRONCHITIS [None]
  - DEHYDRATION [None]
  - DYSPEPSIA [None]
  - FAECES DISCOLOURED [None]
  - HAEMATOCHEZIA [None]
  - INAPPROPRIATE SCHEDULE OF DRUG ADMINISTRATION [None]
  - PNEUMONIA [None]
